FAERS Safety Report 15027264 (Version 2)
Quarter: 2019Q2

REPORT INFORMATION
  Report Type: Report from Study
  Country: None (occurrence: CA)
  Receive Date: 20180619
  Receipt Date: 20190401
  Transmission Date: 20190711
  Serious: Yes (Hospitalization)
  Sender: FDA-Public Use
  Company Number: CA-ABBVIE-18K-028-2389775-00

PATIENT
  Sex: Female

DRUGS (1)
  1. HUMIRA [Suspect]
     Active Substance: ADALIMUMAB
     Indication: CROHN^S DISEASE
     Route: 058
     Dates: start: 20110606

REACTIONS (4)
  - Parkinson^s disease [Not Recovered/Not Resolved]
  - Depression [Recovered/Resolved]
  - Major depression [Not Recovered/Not Resolved]
  - Major depression [Recovered/Resolved]

NARRATIVE: CASE EVENT DATE: 2012
